FAERS Safety Report 4404130-X (Version None)
Quarter: 2004Q3

REPORT INFORMATION
  Report Type: 
  Country: None (occurrence: None)
  Receive Date: 20040722
  Receipt Date: 20031203
  Transmission Date: 20050211
  Serious: No
  Sender: FDA-Public Use
  Company Number: US-BRISTOL-MYERS SQUIBB COMPANY-12448833

PATIENT
  Age: 55 Year
  Sex: Female

DRUGS (1)
  1. CEENU [Suspect]
     Indication: BRAIN NEOPLASM
     Route: 048
     Dates: start: 20031009, end: 20031009

REACTIONS (2)
  - DEAFNESS [None]
  - DISORIENTATION [None]
